FAERS Safety Report 13031975 (Version 3)
Quarter: 2017Q1

REPORT INFORMATION
  Report Type: Spontaneous
  Country: DE (occurrence: DE)
  Receive Date: 20161215
  Receipt Date: 20170125
  Transmission Date: 20170428
  Serious: Yes (Death)
  Sender: FDA-Public Use
  Company Number: PHHY2016DE172913

PATIENT
  Sex: Female

DRUGS (3)
  1. CEFUROXIME. [Suspect]
     Active Substance: CEFUROXIME
     Indication: ERYSIPELAS
     Dosage: 500 MG, QD
     Route: 065
     Dates: start: 20161206
  2. ENTRESTO [Suspect]
     Active Substance: SACUBITRIL\VALSARTAN
     Indication: CARDIAC FAILURE
     Dosage: 50 MG, UNK
     Route: 065
     Dates: start: 20160706, end: 20161207
  3. FLUCONAZOL [Suspect]
     Active Substance: FLUCONAZOLE
     Indication: DERMATOPHYTOSIS
     Dosage: 50 MG, QD
     Route: 065
     Dates: start: 20161114, end: 20161124

REACTIONS (1)
  - Renal failure [Fatal]

NARRATIVE: CASE EVENT DATE: 20161129
